FAERS Safety Report 9856284 (Version 1)
Quarter: 2014Q1

REPORT INFORMATION
  Report Type: Spontaneous
  Country: US (occurrence: US)
  Receive Date: 20140130
  Receipt Date: 20140130
  Transmission Date: 20141002
  Serious: No
  Sender: FDA-Public Use
  Company Number: US-009507513-1401USA013819

PATIENT
  Age: 20 Year
  Sex: 0
  Weight: 67.12 kg

DRUGS (2)
  1. NEXPLANON [Suspect]
     Dosage: UNK
     Route: 059
     Dates: start: 20130920
  2. MOTRIN [Concomitant]
     Dosage: 800 MG

REACTIONS (3)
  - Dizziness [Unknown]
  - Implant site pain [Unknown]
  - Vision blurred [Unknown]
